FAERS Safety Report 9452307 (Version 3)
Quarter: 2013Q4

REPORT INFORMATION
  Report Type: Spontaneous
  Country: US (occurrence: US)
  Receive Date: 20130812
  Receipt Date: 20131001
  Transmission Date: 20140711
  Serious: Yes (Other)
  Sender: FDA-Public Use
  Company Number: US-TEVA-423239USA

PATIENT
  Age: 73 Year
  Sex: Female

DRUGS (1)
  1. TRAZODONE [Suspect]
     Indication: INSOMNIA

REACTIONS (5)
  - Choking [Unknown]
  - Scratch [Unknown]
  - Throat irritation [Unknown]
  - Sensation of foreign body [Unknown]
  - Intentional drug misuse [Unknown]
